FAERS Safety Report 23195694 (Version 1)
Quarter: 2023Q4

REPORT INFORMATION
  Report Type: Spontaneous
  Country: US (occurrence: US)
  Receive Date: 20231117
  Receipt Date: 20231117
  Transmission Date: 20240109
  Serious: Yes (Hospitalization)
  Sender: FDA-Public Use
  Company Number: US-002147023-NVSC2023US243741

PATIENT
  Sex: Female

DRUGS (1)
  1. XIIDRA [Suspect]
     Active Substance: LIFITEGRAST
     Indication: Dry eye
     Dosage: 1 DRP, BID (1 DROP INTO BOTH EYES IN THE MORNING AND AT NIGHT)
     Route: 047

REACTIONS (1)
  - Large intestinal ulcer haemorrhage [Unknown]
